FAERS Safety Report 18483706 (Version 1)
Quarter: 2020Q4

REPORT INFORMATION
  Report Type: Spontaneous
  Country: DE (occurrence: DE)
  Receive Date: 20201110
  Receipt Date: 20201110
  Transmission Date: 20210114
  Serious: Yes (Death, Other)
  Sender: FDA-Public Use
  Company Number: DE-MICRO LABS LIMITED-ML2020-03315

PATIENT
  Age: 24 Year
  Sex: Male

DRUGS (10)
  1. OXAZEPAM. [Suspect]
     Active Substance: OXAZEPAM
  2. META-CHLOROPHENYLPIPERAZINE [Suspect]
     Active Substance: META-CHLOROPHENYLPIPERAZINE
  3. O-DESMETHYLVENLAFAXINE [Suspect]
     Active Substance: DESVENLAFAXINE
  4. TEMAZEPAM. [Suspect]
     Active Substance: TEMAZEPAM
  5. U-47700 [Suspect]
     Active Substance: U-47700
  6. TRAZODONE [Suspect]
     Active Substance: TRAZODONE HYDROCHLORIDE
  7. VENLAFAXINE [Suspect]
     Active Substance: VENLAFAXINE HYDROCHLORIDE
  8. CAFFEINE CITRATE. [Suspect]
     Active Substance: CAFFEINE CITRATE
  9. THEOPHYLLINE [Suspect]
     Active Substance: THEOPHYLLINE ANHYDROUS
  10. NORDIAZEPAM [Suspect]
     Active Substance: NORDAZEPAM

REACTIONS (2)
  - Drug abuse [Unknown]
  - Toxicity to various agents [Fatal]
